FAERS Safety Report 13834300 (Version 2)
Quarter: 2017Q3

REPORT INFORMATION
  Report Type: Spontaneous
  Country: CZ (occurrence: CZ)
  Receive Date: 20170804
  Receipt Date: 20170927
  Transmission Date: 20171127
  Serious: Yes (Death, Life-Threatening, Hospitalization, Other)
  Sender: FDA-Public Use
  Company Number: CZ-SUN PHARMACEUTICAL INDUSTRIES LTD-2017R1-146857

PATIENT
  Age: 14 Year
  Sex: Female
  Weight: 55 kg

DRUGS (2)
  1. VASOCARDIN [Suspect]
     Active Substance: METOPROLOL
     Indication: PRODUCT USED FOR UNKNOWN INDICATION
     Dosage: PROBABLY 1 G
     Route: 048
  2. RYTMONORM [Interacting]
     Active Substance: PROPAFENONE
     Indication: PRODUCT USED FOR UNKNOWN INDICATION
     Dosage: PROBABLY 1.5-3 G
     Route: 048

REACTIONS (7)
  - Completed suicide [Fatal]
  - Cardiac arrest [Recovered/Resolved]
  - Overdose [Fatal]
  - Cardiogenic shock [Recovered/Resolved]
  - Drug interaction [Fatal]
  - Cerebral haemorrhage [Fatal]
  - Brain oedema [Fatal]
